FAERS Safety Report 11316598 (Version 1)
Quarter: 2015Q3

REPORT INFORMATION
  Report Type: Spontaneous
  Country: CA (occurrence: CA)
  Receive Date: 20150728
  Receipt Date: 20150728
  Transmission Date: 20151125
  Serious: Yes (Hospitalization, Disabling)
  Sender: FDA-Public Use
  Company Number: CA-TEVA-581697ACC

PATIENT
  Age: 84 Year
  Sex: Male
  Weight: 87 kg

DRUGS (2)
  1. SIMVASTATIN. [Suspect]
     Active Substance: SIMVASTATIN
     Indication: ARTERIOSCLEROSIS CORONARY ARTERY
     Dosage: 80 MILLIGRAM DAILY;
     Route: 048
  2. NORVASC TAB 5MG [Concomitant]
     Route: 065

REACTIONS (8)
  - Asthenia [Unknown]
  - Pancreatic neoplasm [Unknown]
  - Weight decreased [Unknown]
  - Polymyositis [Unknown]
  - Cholestasis [Unknown]
  - Lung neoplasm [Unknown]
  - Condition aggravated [Unknown]
  - Metastases to liver [Unknown]
